FAERS Safety Report 6110893-8 (Version None)
Quarter: 2009Q1

REPORT INFORMATION
  Report Type: 
  Country: None (occurrence: None)
  Receive Date: 20090310
  Receipt Date: 20090310
  Transmission Date: 20090719
  Serious: Yes (Other)
  Sender: FDA-Public Use
  Company Number: None

PATIENT
  Sex: Female
  Weight: 67.1324 kg

DRUGS (2)
  1. CITALOPRAM HYDROBROMIDE [Suspect]
     Indication: DEPRESSION
     Dosage: 20MG ONCE QD ORAL
     Route: 048
     Dates: start: 20090101
  2. CELEXA [Suspect]

REACTIONS (11)
  - AGITATION [None]
  - ARTHRALGIA [None]
  - ASTHENIA [None]
  - DEPRESSION [None]
  - DRUG EFFECT DECREASED [None]
  - HEADACHE [None]
  - INSOMNIA [None]
  - JOINT STIFFNESS [None]
  - LIBIDO DECREASED [None]
  - PRODUCT QUALITY ISSUE [None]
  - VISION BLURRED [None]
